FAERS Safety Report 24637595 (Version 1)
Quarter: 2024Q4

REPORT INFORMATION
  Report Type: Spontaneous
  Country: US (occurrence: US)
  Receive Date: 20241119
  Receipt Date: 20241119
  Transmission Date: 20250115
  Serious: No
  Sender: SEPTODONT
  Company Number: US-SEPTODONT-2024018936

PATIENT

DRUGS (2)
  1. SEPTOCAINE [Suspect]
     Active Substance: ARTICAINE HYDROCHLORIDE\EPINEPHRINE BITARTRATE
     Indication: Local anaesthesia
     Dosage: INJECT 3 MORE TIMES ON THE LEFT SIDE.
     Route: 004
  2. LIDOCAINE [Concomitant]
     Active Substance: LIDOCAINE

REACTIONS (5)
  - Hypoaesthesia oral [Unknown]
  - Dry mouth [Unknown]
  - Cough [Unknown]
  - Dyspnoea [Unknown]
  - Dysphonia [Unknown]
